FAERS Safety Report 18983186 (Version 3)
Quarter: 2022Q4

REPORT INFORMATION
  Report Type: Spontaneous
  Country: DE (occurrence: DE)
  Receive Date: 20210308
  Receipt Date: 20221019
  Transmission Date: 20230113
  Serious: Yes (Hospitalization)
  Sender: FDA-Public Use
  Company Number: DE-ALLERGAN-2108766US

PATIENT
  Sex: Male

DRUGS (13)
  1. UNSPECIFIED INGREDIENT [Suspect]
     Active Substance: UNSPECIFIED INGREDIENT
     Indication: Product used for unknown indication
  2. REVLIMID [Suspect]
     Active Substance: LENALIDOMIDE
     Indication: Plasma cell myeloma
     Dosage: 10 MG, QAM (1-0-0-0)
     Route: 048
  3. DARATUMUMAB [Suspect]
     Active Substance: DARATUMUMAB
     Indication: Product used for unknown indication
  4. HUMALOG [Concomitant]
     Active Substance: INSULIN LISPRO
     Dosage: 100 UNITS/ ML INJECTION SOLUTION IN 3ML CARTRIDGE, BY VALUE, AMPOULES
     Route: 058
  5. LANTUS [Concomitant]
     Active Substance: INSULIN GLARGINE
     Dosage: 100 UNITS / ML SOLUTION FOR INJECTION IN 3ML CARTRIDGE,BY VALUE, AMPOULES
     Route: 058
  6. COTRIM CT [Concomitant]
     Dosage: 800/160 MG TABLETS ON MONDAY,WEDNESDAY, FRIDAY, ONCE IN THE MORNING (1-0-0-0)
     Route: 048
  7. DELIX [Concomitant]
     Indication: Product used for unknown indication
     Dosage: 5 MG, 0.5-0-0.5-0
     Route: 048
  8. FOSTER [Concomitant]
     Active Substance: BECLOMETHASONE\FORMOTEROL
     Dosage: 100/6 ?G, IF NECESSARY
     Route: 048
  9. CARMEN [Concomitant]
     Dosage: 10 MG, 0.5-0-0.5-0
     Route: 048
  10. CARVEDIGAMMA [Concomitant]
     Dosage: 6.25 MG, 0.5-0-0.5-0
     Route: 048
  11. OMEPRAZOLE [Concomitant]
     Active Substance: OMEPRAZOLE
     Indication: Product used for unknown indication
     Dosage: 20 MG, QD
     Route: 048
  12. ACYCLOVIR [Concomitant]
     Active Substance: ACYCLOVIR
     Dosage: 400 MG, 1-1-1-0
     Route: 048
  13. OMEPRAZOLE [Concomitant]
     Active Substance: OMEPRAZOLE
     Dosage: 20 MG, 1-0-0-0
     Route: 048

REACTIONS (6)
  - Diarrhoea [Unknown]
  - General physical health deterioration [Unknown]
  - Fatigue [Unknown]
  - Pyrexia [Unknown]
  - Abdominal pain [Unknown]
  - Localised infection [Unknown]
